FAERS Safety Report 7207834-9 (Version None)
Quarter: 2010Q4

REPORT INFORMATION
  Report Type: 
  Country: None (occurrence: None)
  Receive Date: 20101221
  Receipt Date: 20101206
  Transmission Date: 20110411
  Serious: Yes (Hospitalization, Other)
  Sender: FDA-Public Use
  Company Number: 2008001706

PATIENT
  Age: 61 Year
  Sex: Male
  Weight: 57.6 kg

DRUGS (1)
  1. ERLOTINIB (ERLOTINIB) (TABLET) (ERLOTINIB) [Suspect]
     Indication: LUNG ADENOCARCINOMA
     Dosage: (150 MG, 1 IN 1 D), ORAL
     Route: 048
     Dates: start: 20080703, end: 20080810

REACTIONS (10)
  - CARDIAC TAMPONADE [None]
  - EMPHYSEMA [None]
  - HEPATIC CONGESTION [None]
  - HEPATIC NECROSIS [None]
  - INTERSTITIAL LUNG DISEASE [None]
  - LUNG NEOPLASM MALIGNANT [None]
  - MALIGNANT NEOPLASM PROGRESSION [None]
  - PERICARDITIS [None]
  - PLEURAL EFFUSION [None]
  - PULMONARY FIBROSIS [None]
